FAERS Safety Report 6080876-5 (Version None)
Quarter: 2009Q1

REPORT INFORMATION
  Report Type: 
  Country: None (occurrence: None)
  Receive Date: 20090217
  Receipt Date: 20090111
  Transmission Date: 20090719
  Serious: No
  Sender: FDA-Public Use
  Company Number: US-B.I. PHARMACEUTICALS,INC./RIDGEFIELD-2009-BP-01842BP

PATIENT
  Age: 39 Year
  Sex: Male

DRUGS (3)
  1. VIRAMUNE [Suspect]
     Indication: HIV INFECTION
  2. AZT [Concomitant]
     Indication: HIV INFECTION
  3. DIDANOSINE [Concomitant]
     Indication: HIV INFECTION

REACTIONS (2)
  - ALCOHOL INTOLERANCE [None]
  - HANGOVER [None]
